FAERS Safety Report 10381381 (Version 1)
Quarter: 2014Q3

REPORT INFORMATION
  Report Type: Spontaneous
  Country: SG (occurrence: SG)
  Receive Date: 20140813
  Receipt Date: 20140813
  Transmission Date: 20150326
  Serious: Yes (Other)
  Sender: FDA-Public Use
  Company Number: SG-BAYER-2014-118094

PATIENT
  Age: 24 Year
  Sex: Female

DRUGS (3)
  1. AUGMENTIN [Suspect]
     Active Substance: AMOXICILLIN\CLAVULANATE POTASSIUM
  2. BACTRIM [Suspect]
     Active Substance: SULFAMETHOXAZOLE\TRIMETHOPRIM
  3. CIPROBAY 250 TABLET 250 MG [Suspect]
     Active Substance: CIPROFLOXACIN
     Dosage: 250 MG, UNK

REACTIONS (3)
  - Eye swelling [None]
  - Anaphylactic shock [None]
  - Dyspnoea [None]

NARRATIVE: CASE EVENT DATE: 20090101
